FAERS Safety Report 8990274 (Version 1)
Quarter: 2012Q4

REPORT INFORMATION
  Report Type: Report from Study
  Country: CA (occurrence: CA)
  Receive Date: 20121228
  Receipt Date: 20121228
  Transmission Date: 20130627
  Serious: Yes (Hospitalization)
  Sender: FDA-Public Use
  Company Number: CA-UCBSA-073842

PATIENT
  Age: 80 Year
  Sex: Female

DRUGS (12)
  1. CERTOLIZUMAB PEGOL [Suspect]
     Indication: RHEUMATOID ARTHRITIS
     Dosage: No of doses received: 16
     Route: 058
     Dates: start: 20120510
  2. METHOTREXATE [Concomitant]
     Indication: RHEUMATOID ARTHRITIS
     Dosage: 12.5 MG QS
     Route: 048
     Dates: start: 20030306
  3. METFORMIN [Concomitant]
     Indication: DIABETES MELLITUS
     Route: 048
     Dates: start: 2009
  4. TYLENOL WITH CODEINE [Concomitant]
     Indication: RHEUMATOID ARTHRITIS
     Dosage: 2 TAB PRN
     Route: 048
     Dates: start: 20090824
  5. RAMIPRIL [Concomitant]
     Indication: HYPERTENSION
     Route: 048
     Dates: start: 20100721
  6. CRESTOR [Concomitant]
     Indication: HYPERLIPIDAEMIA
     Route: 048
     Dates: start: 20100721
  7. MELOXICAN [Concomitant]
     Indication: RHEUMATOID ARTHRITIS
     Route: 048
     Dates: start: 20060914
  8. FOLIC ACID [Concomitant]
     Indication: PROPHYLAXIS
     Dosage: 5 MG 6 x S
     Route: 048
     Dates: start: 20030306
  9. TYLENOL [Concomitant]
     Indication: RHEUMATOID ARTHRITIS
     Dosage: 500 MG TID PRN
     Route: 048
     Dates: start: 1980
  10. HYDROXYZINE [Concomitant]
     Indication: PRURITUS
     Dosage: 50 MG QPM PRN
     Route: 048
     Dates: start: 20120109
  11. INSULIN [Concomitant]
     Indication: DIABETES MELLITUS
     Dosage: 20 UNITS QPM
     Route: 058
     Dates: start: 201210
  12. TECTA [Concomitant]
     Indication: PROPHYLAXIS
     Route: 048
     Dates: start: 20120828

REACTIONS (1)
  - Cystitis [Recovered/Resolved]
